FAERS Safety Report 5816524-6 (Version None)
Quarter: 2008Q3

REPORT INFORMATION
  Report Type: 
  Country: None (occurrence: None)
  Receive Date: 20080717
  Receipt Date: 20080717
  Transmission Date: 20090109
  Serious: Yes (Disabling, Other)
  Sender: FDA-Public Use
  Company Number: None

PATIENT
  Age: 36 Year
  Sex: Female
  Weight: 48.9885 kg

DRUGS (1)
  1. LEVAQUIN [Suspect]
     Indication: VAGINITIS BACTERIAL
     Dosage: 1 DAILY PO
     Route: 048
     Dates: start: 20080109, end: 20080119

REACTIONS (1)
  - TENDONITIS [None]
